FAERS Safety Report 6996614-5 (Version None)
Quarter: 2010Q3

REPORT INFORMATION
  Report Type: 
  Country: None (occurrence: None)
  Receive Date: 20100918
  Receipt Date: 20090512
  Transmission Date: 20110219
  Serious: Yes (Other)
  Sender: FDA-Public Use
  Company Number: US-WYE-H09325609

PATIENT
  Sex: Female
  Weight: 77.18 kg

DRUGS (3)
  1. EFFEXOR [Suspect]
     Indication: DEPRESSION
     Route: 048
     Dates: start: 20081001, end: 20090301
  2. EFFEXOR [Suspect]
     Route: 048
     Dates: start: 20090301
  3. LORAZEPAM [Concomitant]
     Indication: INSOMNIA

REACTIONS (2)
  - SOMNOLENCE [None]
  - WEIGHT INCREASED [None]
